FAERS Safety Report 18740162 (Version 1)
Quarter: 2021Q1

REPORT INFORMATION
  Report Type: Spontaneous
  Country: US (occurrence: US)
  Receive Date: 20210114
  Receipt Date: 20210114
  Transmission Date: 20210419
  Serious: No
  Sender: FDA-Public Use
  Company Number: None

PATIENT
  Sex: Female

DRUGS (1)
  1. TECFIDERA [Suspect]
     Active Substance: DIMETHYL FUMARATE
     Indication: MULTIPLE SCLEROSIS
     Route: 048
     Dates: start: 20190316

REACTIONS (6)
  - Rash [None]
  - Pyrexia [None]
  - Extra dose administered [None]
  - Chills [None]
  - Musculoskeletal chest pain [None]
  - Pruritus [None]
